FAERS Safety Report 5341656-9 (Version None)
Quarter: 2007Q2

REPORT INFORMATION
  Report Type: 
  Country: None (occurrence: None)
  Receive Date: 20070530
  Receipt Date: 20070516
  Transmission Date: 20071010
  Serious: Yes (Death, Hospitalization)
  Sender: FDA-Public Use
  Company Number: CERZ-11718

PATIENT
  Age: 22 Year
  Weight: 52 kg

DRUGS (3)
  1. CEREZYME [Suspect]
     Indication: GAUCHER'S DISEASE
     Dosage: 60 U/KG Q2WKS IV
     Route: 042
     Dates: start: 20021028, end: 20060601
  2. TEGRETOL [Concomitant]
  3. ESTAZOLAM [Concomitant]

REACTIONS (5)
  - BEDRIDDEN [None]
  - CONVULSION [None]
  - ORAL INTAKE REDUCED [None]
  - PYREXIA [None]
  - TREMOR [None]
